FAERS Safety Report 17559910 (Version 1)
Quarter: 2020Q1

REPORT INFORMATION
  Report Type: Report from Study
  Country: IT (occurrence: IT)
  Receive Date: 20200319
  Receipt Date: 20200319
  Transmission Date: 20200409
  Serious: Yes (Other)
  Sender: FDA-Public Use
  Company Number: IT-ACCORD-176204

PATIENT
  Age: 78 Year
  Sex: Female

DRUGS (8)
  1. FOLINA [Concomitant]
     Dosage: STRENGTH: 5 MG
  2. METHOTREXATE. [Suspect]
     Active Substance: METHOTREXATE
     Indication: RHEUMATOID ARTHRITIS
     Route: 030
     Dates: start: 20190101, end: 20200103
  3. PANTOPRAZOLE AUROBINDO [Concomitant]
     Active Substance: PANTOPRAZOLE
     Dosage: STRENGTH: 20 MG
  4. TRIATEC [Concomitant]
  5. LASIX [Concomitant]
     Active Substance: FUROSEMIDE
     Dosage: STRENGTH: 25 MG
  6. FOSAVANCE [Concomitant]
     Active Substance: ALENDRONATE SODIUM\CHOLECALCIFEROL
  7. INDOXEN [Concomitant]
     Active Substance: INDOMETHACIN
     Dosage: STRENGTH: 25 MG
  8. CATAPRESAN [Concomitant]
     Active Substance: CLONIDINE
     Dosage: STRENGTH: 25 MG

REACTIONS (3)
  - Face oedema [Recovering/Resolving]
  - Oropharyngeal pain [Recovering/Resolving]
  - Pruritus [Recovering/Resolving]

NARRATIVE: CASE EVENT DATE: 20200103
